FAERS Safety Report 24244955 (Version 3)
Quarter: 2025Q2

REPORT INFORMATION
  Report Type: Spontaneous
  Country: US (occurrence: US)
  Receive Date: 20240823
  Receipt Date: 20250627
  Transmission Date: 20250717
  Serious: No
  Sender: BRISTOL-MYERS SQUIBB COMPANY
  Company Number: US-BRISTOL-MYERS SQUIBB COMPANY-2024-130341

PATIENT
  Age: 68 Year
  Sex: Male
  Weight: 100.7 kg

DRUGS (3)
  1. REVLIMID [Suspect]
     Active Substance: LENALIDOMIDE
     Indication: Plasma cell myeloma
     Route: 048
  2. REVLIMID [Suspect]
     Active Substance: LENALIDOMIDE
     Indication: Plasma cell myeloma recurrent
     Route: 048
  3. REVLIMID [Suspect]
     Active Substance: LENALIDOMIDE
     Route: 048

REACTIONS (10)
  - Back pain [Recovering/Resolving]
  - Night sweats [Unknown]
  - Hot flush [Unknown]
  - Bowel movement irregularity [Unknown]
  - Onychomadesis [Recovering/Resolving]
  - Fatigue [Recovering/Resolving]
  - Photosensitivity reaction [Not Recovered/Not Resolved]
  - Heart rate decreased [Recovering/Resolving]
  - Erythema [Not Recovered/Not Resolved]
  - Hyperhidrosis [Not Recovered/Not Resolved]
